FAERS Safety Report 16700710 (Version 1)
Quarter: 2019Q3

REPORT INFORMATION
  Report Type: Spontaneous
  Country: BR (occurrence: BR)
  Receive Date: 20190814
  Receipt Date: 20190814
  Transmission Date: 20191004
  Serious: Yes (Hospitalization, Other)
  Sender: FDA-Public Use
  Company Number: BR-ROCHE-2367279

PATIENT
  Age: 55 Year
  Sex: Female
  Weight: 42 kg

DRUGS (15)
  1. VINCRISTINE [Suspect]
     Active Substance: VINCRISTINE
     Indication: B-CELL LYMPHOMA
     Dosage: 1 INFUSION EVERY 21 DAYS
     Route: 065
     Dates: start: 20190718
  2. PARACETAMOL [Concomitant]
     Active Substance: ACETAMINOPHEN
     Dosage: 1 CAPSULE A DAY
     Route: 065
  3. PARACETAMOL [Concomitant]
     Active Substance: ACETAMINOPHEN
     Route: 065
     Dates: start: 20190718
  4. CODEINE [Concomitant]
     Active Substance: CODEINE
     Dosage: 1 CAPSULE EVERY 8 HOURS
     Route: 065
  5. DOXORUBICIN [Suspect]
     Active Substance: DOXORUBICIN
     Indication: B-CELL LYMPHOMA
     Dosage: 1 INFUSION EVERY 21 DAYS
     Route: 065
     Dates: start: 20190718
  6. PREDNISOLONE. [Suspect]
     Active Substance: PREDNISOLONE
     Indication: B-CELL LYMPHOMA
     Dosage: 1 INFUSION EVERY 21 DAYS
     Route: 065
     Dates: start: 20190718
  7. DEXAMETHASONE. [Concomitant]
     Active Substance: DEXAMETHASONE
     Route: 065
     Dates: start: 20190718
  8. ALLOPURINOL. [Concomitant]
     Active Substance: ALLOPURINOL
     Dosage: 1 CAPSULE EVERY 12 HOURS
     Route: 065
  9. OMEPRAZOLE. [Concomitant]
     Active Substance: OMEPRAZOLE
     Route: 065
  10. CYCLOPHOSPHAMIDE. [Suspect]
     Active Substance: CYCLOPHOSPHAMIDE
     Indication: B-CELL LYMPHOMA
     Dosage: 1 INFUSION EVERY 21 DAYS
     Route: 065
     Dates: start: 20190718
  11. DIPHENHYDRAMINE. [Concomitant]
     Active Substance: DIPHENHYDRAMINE
     Route: 065
     Dates: start: 20190718
  12. MABTHERA [Suspect]
     Active Substance: RITUXIMAB
     Indication: B-CELL LYMPHOMA
     Dosage: 1 INFUSION EVERY 21 DAYS
     Route: 042
     Dates: start: 20190718
  13. GRANISETRON [Concomitant]
     Active Substance: GRANISETRON
     Route: 065
     Dates: start: 20190718
  14. SULFAMETHOXAZOLE;TRIMETHOPRIM [Concomitant]
     Active Substance: SULFAMETHOXAZOLE\TRIMETHOPRIM
     Dosage: 1 CAPSULE A DAY
     Route: 065
  15. ONDANSETRON [Concomitant]
     Active Substance: ONDANSETRON
     Dosage: 1 CAPSULE WHEN NECESSARY
     Route: 065

REACTIONS (8)
  - Obstructive airways disorder [Recovered/Resolved]
  - Dyspnoea [Recovered/Resolved]
  - Slow speech [Recovered/Resolved]
  - Hypoxia [Recovered/Resolved]
  - Dysarthria [Recovered/Resolved]
  - Respiratory distress [Recovered/Resolved]
  - Flushing [Recovered/Resolved]
  - Hyperaemia [Recovered/Resolved]

NARRATIVE: CASE EVENT DATE: 20190718
